FAERS Safety Report 12332816 (Version 1)
Quarter: 2016Q2

REPORT INFORMATION
  Report Type: Spontaneous
  Country: US (occurrence: US)
  Receive Date: 20160504
  Receipt Date: 20160504
  Transmission Date: 20160815
  Serious: No
  Sender: FDA-Public Use
  Company Number: US-MEDA-2016040044

PATIENT
  Age: 82 Year
  Sex: Male
  Weight: 91 kg

DRUGS (2)
  1. TRILYTE WITH FLAVOR PACKS [Suspect]
     Active Substance: POLYETHYLENE GLYCOL 3350\POTASSIUM CHLORIDE\SODIUM BICARBONATE\SODIUM CHLORIDE
     Indication: COLONOSCOPY
     Route: 048
     Dates: start: 20160411, end: 20160411
  2. ATENOLOL. [Concomitant]
     Active Substance: ATENOLOL
     Indication: HYPERTENSION

REACTIONS (2)
  - Nausea [Recovered/Resolved]
  - Rhinorrhoea [Recovered/Resolved]

NARRATIVE: CASE EVENT DATE: 20160411
